FAERS Safety Report 7536118-4 (Version None)
Quarter: 2011Q2

REPORT INFORMATION
  Report Type: 
  Country: None (occurrence: None)
  Receive Date: 20110602
  Receipt Date: 20110520
  Transmission Date: 20111010
  Serious: Yes (Other)
  Sender: FDA-Public Use
  Company Number: DSJ-2011-09794

PATIENT
  Sex: Female

DRUGS (1)
  1. OLMESARTAN MEDOXOMIL [Suspect]
     Indication: PRODUCT USED FOR UNKNOWN INDICATION
     Dosage: 20 MG (20 MG, 1 IN 1 D),

REACTIONS (4)
  - LOSS OF CONSCIOUSNESS [None]
  - FACE INJURY [None]
  - UPPER LIMB FRACTURE [None]
  - FALL [None]
